FAERS Safety Report 12232533 (Version 2)
Quarter: 2016Q2

REPORT INFORMATION
  Report Type: Spontaneous
  Country: US (occurrence: US)
  Receive Date: 20160401
  Receipt Date: 20160525
  Transmission Date: 20160815
  Serious: Yes (Other)
  Sender: FDA-Public Use
  Company Number: US-TEVA-635048USA

PATIENT
  Age: 36 Year
  Sex: Female

DRUGS (2)
  1. ZECUITY [Suspect]
     Active Substance: SUMATRIPTAN SUCCINATE
     Route: 062
     Dates: start: 20160214
  2. ZECUITY [Suspect]
     Active Substance: SUMATRIPTAN SUCCINATE
     Route: 062
     Dates: start: 20160211

REACTIONS (10)
  - Application site irritation [Unknown]
  - Sunburn [Unknown]
  - Application site pain [Unknown]
  - Application site erythema [Unknown]
  - Application site burn [Unknown]
  - Incorrect drug administration duration [Recovered/Resolved]
  - Device leakage [Unknown]
  - Underdose [Recovered/Resolved]
  - Application site pruritus [Unknown]
  - Application site pain [Recovered/Resolved]

NARRATIVE: CASE EVENT DATE: 20160211
